FAERS Safety Report 23151255 (Version 4)
Quarter: 2023Q4

REPORT INFORMATION
  Report Type: Report from Study
  Country: US (occurrence: US)
  Receive Date: 20231106
  Receipt Date: 20231120
  Transmission Date: 20240109
  Serious: Yes (Other)
  Sender: FDA-Public Use
  Company Number: US-ABBVIE-5474247

PATIENT
  Sex: Female
  Weight: 59 kg

DRUGS (3)
  1. HUMIRA [Suspect]
     Active Substance: ADALIMUMAB
     Indication: Colitis ulcerative
     Route: 058
     Dates: start: 2016, end: 201803
  2. RECTIV [Suspect]
     Active Substance: NITROGLYCERIN
     Indication: Anal fissure
     Dosage: 1 INCH OF OINTMENT WITH 4 MG/G
     Route: 065
     Dates: start: 2021, end: 202309
  3. XIFAXAN [Concomitant]
     Active Substance: RIFAXIMIN
     Indication: Pouchitis

REACTIONS (8)
  - Lupus-like syndrome [Recovered/Resolved]
  - Blood immunoglobulin G abnormal [Recovered/Resolved]
  - Pain [Recovered/Resolved]
  - Antinuclear antibody positive [Recovered/Resolved]
  - Expired product administered [Recovered/Resolved]
  - Double stranded DNA antibody positive [Recovered/Resolved]
  - Intervertebral disc degeneration [Not Recovered/Not Resolved]
  - Anal fissure [Not Recovered/Not Resolved]

NARRATIVE: CASE EVENT DATE: 20160101
